FAERS Safety Report 7557518-2 (Version None)
Quarter: 2011Q2

REPORT INFORMATION
  Report Type: 
  Country: None (occurrence: None)
  Receive Date: 20110620
  Receipt Date: 20110609
  Transmission Date: 20111010
  Serious: Yes (Other)
  Sender: FDA-Public Use
  Company Number: US-JNJFOC-20110509447

PATIENT
  Sex: Male

DRUGS (10)
  1. CLONIDINE [Suspect]
     Indication: PRODUCT USED FOR UNKNOWN INDICATION
     Route: 065
  2. ZOLOFT [Suspect]
     Route: 065
  3. ZITHROMAX [Suspect]
     Indication: PRODUCT USED FOR UNKNOWN INDICATION
     Route: 065
  4. ZOLOFT [Suspect]
     Route: 065
  5. TUSSIONEX [Suspect]
     Indication: PRODUCT USED FOR UNKNOWN INDICATION
     Route: 065
  6. ZOLOFT [Suspect]
     Indication: DEPRESSION
     Route: 065
  7. ZOLOFT [Suspect]
     Indication: ANXIETY
     Route: 065
  8. ULTRAM [Suspect]
     Indication: INTERVERTEBRAL DISC PROTRUSION
     Route: 065
  9. MS CONTIN [Suspect]
     Indication: INTERVERTEBRAL DISC PROTRUSION
     Route: 065
     Dates: end: 20110101
  10. LORAZEPAM [Suspect]
     Indication: PRODUCT USED FOR UNKNOWN INDICATION
     Route: 065

REACTIONS (5)
  - BACK PAIN [None]
  - BRONCHITIS [None]
  - DEPRESSION [None]
  - EAR PAIN [None]
  - ANXIETY [None]
